FAERS Safety Report 9192201 (Version 1)
Quarter: 2013Q1

REPORT INFORMATION
  Report Type: Spontaneous
  Country: US (occurrence: None)
  Receive Date: 20120703
  Receipt Date: 20120703
  Transmission Date: 20140127
  Serious: Yes (Other)
  Sender: FDA-Public Use
  Company Number: PHEH2012US006628

PATIENT
  Age: 50 Year
  Sex: Female

DRUGS (4)
  1. GILENYA (FTY)CAPSULE, 0.5 MG [Suspect]
     Indication: RELAPSING-REMITTING MULTIPLE SCLEROSIS
     Route: 048
     Dates: start: 20111227, end: 20120320
  2. BACLOFEN (BACLOFEN) [Concomitant]
  3. ADDERALL (AMFETAMINE ASPARTATE) [Concomitant]
  4. PRISTIQ (DESVENLAFAXINE SUCCINATE) [Concomitant]

REACTIONS (3)
  - Leukopenia [None]
  - Lymphopenia [None]
  - Neutrophil count decreased [None]
